FAERS Safety Report 19823716 (Version 1)
Quarter: 2021Q3

REPORT INFORMATION
  Report Type: Spontaneous
  Country: SK (occurrence: SK)
  Receive Date: 20210913
  Receipt Date: 20210913
  Transmission Date: 20211014
  Serious: Yes (Other)
  Sender: FDA-Public Use
  Company Number: SK-MYLANLABS-2021M1060979

PATIENT
  Sex: Male

DRUGS (2)
  1. ADALIMUMAB MYLAN [Suspect]
     Active Substance: ADALIMUMAB
     Indication: ACNE CONGLOBATA
  2. ADALIMUMAB MYLAN [Suspect]
     Active Substance: ADALIMUMAB
     Indication: HIDRADENITIS
     Dosage: UNK

REACTIONS (3)
  - Type 2 diabetes mellitus [Unknown]
  - Drug intolerance [Unknown]
  - Disease progression [Unknown]
